FAERS Safety Report 24176399 (Version 1)
Quarter: 2024Q3

REPORT INFORMATION
  Report Type: Spontaneous
  Country: FR (occurrence: FR)
  Receive Date: 20240806
  Receipt Date: 20240806
  Transmission Date: 20241017
  Serious: Yes (Life-Threatening, Hospitalization, Other)
  Sender: CHEPLAPHARM
  Company Number: None

PATIENT
  Age: 60 Year
  Sex: Female
  Weight: 72 kg

DRUGS (5)
  1. CLONAZEPAM [Suspect]
     Active Substance: CLONAZEPAM
     Route: 048
     Dates: start: 20240705
  2. ACETAMINOPHEN\OPIUM [Suspect]
     Active Substance: ACETAMINOPHEN\OPIUM
     Dosage: 16 CAPSULES
     Route: 048
     Dates: start: 20240705
  3. MIRTAZAPINE [Suspect]
     Active Substance: MIRTAZAPINE
     Route: 048
     Dates: start: 20240705
  4. TRIMEPRAZINE [Suspect]
     Active Substance: TRIMEPRAZINE
     Route: 048
     Dates: start: 20240705
  5. VENLAFAXINE [Concomitant]
     Active Substance: VENLAFAXINE HYDROCHLORIDE
     Indication: Mental disorder

REACTIONS (7)
  - Coma [Recovered/Resolved]
  - Torsade de pointes [Recovered/Resolved]
  - Poisoning deliberate [Recovered/Resolved]
  - Vasoplegia syndrome [Unknown]
  - Electrocardiogram QT prolonged [Unknown]
  - Hypokalaemia [Unknown]
  - Hypovolaemia [Unknown]

NARRATIVE: CASE EVENT DATE: 20240705
